FAERS Safety Report 9693353 (Version 1)
Quarter: 2013Q4

REPORT INFORMATION
  Report Type: Spontaneous
  Country: US (occurrence: None)
  Receive Date: 20131114
  Receipt Date: 20131114
  Transmission Date: 20140711
  Serious: Yes (Hospitalization, Other)
  Sender: FDA-Public Use
  Company Number: US-ZYDUS-002394

PATIENT
  Age: 69 Year
  Sex: Female

DRUGS (3)
  1. AMLODIPINE (AMLODIPINE) [Suspect]
  2. ATENOLOL (ATENOLOL) [Suspect]
  3. THIORIDAZINE (THIORIDAZINE) [Suspect]

REACTIONS (1)
  - Shock [None]
